FAERS Safety Report 7462495-9 (Version None)
Quarter: 2011Q2

REPORT INFORMATION
  Report Type: 
  Country: None (occurrence: None)
  Receive Date: 20110506
  Receipt Date: 20110425
  Transmission Date: 20111010
  Serious: Yes (Hospitalization, Disabling, Other)
  Sender: FDA-Public Use
  Company Number: SG-BAYER-2011-033637

PATIENT
  Age: 51 Year
  Sex: Female

DRUGS (2)
  1. VINORELBINE [Suspect]
     Indication: NON-SMALL CELL LUNG CANCER
     Dosage: 20 MG, QOD
     Route: 048
     Dates: end: 20110418
  2. SORAFENIB (RAF KINASE INHIBITOR) [Suspect]
     Indication: NON-SMALL CELL LUNG CANCER
     Dosage: 400 MG, BID
     Route: 048
     Dates: end: 20110418

REACTIONS (4)
  - BLINDNESS [None]
  - DYSPNOEA [None]
  - DIARRHOEA [None]
  - CEREBRAL INFARCTION [None]
